FAERS Safety Report 6370148-3 (Version None)
Quarter: 2009Q3

REPORT INFORMATION
  Report Type: 
  Country: None (occurrence: None)
  Receive Date: 20090923
  Receipt Date: 20070926
  Transmission Date: 20100115
  Serious: Yes (Other)
  Sender: FDA-Public Use
  Company Number: US-ASTRAZENECA-2006UW20476

PATIENT
  Age: 17208 Day
  Sex: Female
  Weight: 78.9 kg

DRUGS (29)
  1. SEROQUEL [Suspect]
     Indication: BIPOLAR DISORDER
     Dosage: 100MG-500MG
     Route: 048
     Dates: start: 20031027
  2. SEROQUEL [Suspect]
     Indication: DEPRESSION
     Dosage: 100MG-500MG
     Route: 048
     Dates: start: 20031027
  3. SEROQUEL [Suspect]
     Route: 048
     Dates: start: 20031124, end: 20041101
  4. SEROQUEL [Suspect]
     Route: 048
     Dates: start: 20031124, end: 20041101
  5. SEROQUEL [Suspect]
     Route: 048
     Dates: start: 20031124, end: 20041101
  6. SEROQUEL [Suspect]
     Route: 048
     Dates: start: 20031124, end: 20041101
  7. SEROQUEL [Suspect]
     Route: 048
     Dates: start: 20031124, end: 20041101
  8. SEROQUEL [Suspect]
     Route: 048
     Dates: start: 20031124, end: 20041101
  9. ABILIFY [Concomitant]
  10. CLOZARIL [Concomitant]
  11. HALDOL [Concomitant]
     Dates: start: 20070301
  12. RISPERDAL [Concomitant]
  13. MIRTAZAPINE [Concomitant]
     Dosage: 45 MG/15 MG
  14. EFFEXOR [Concomitant]
  15. XANAX [Concomitant]
     Dates: start: 20070401
  16. TRAZODONE [Concomitant]
     Dates: start: 19970101
  17. KLONOPIN [Concomitant]
  18. VALIUM [Concomitant]
  19. SYNTHROID [Concomitant]
     Dosage: 0.05MG-0.125MG
     Dates: start: 19900604
  20. BUSPAR [Concomitant]
     Dosage: 15MG-30MG
     Dates: start: 19980728
  21. REMERON [Concomitant]
     Dosage: 30MG-45MG
     Dates: start: 20010613
  22. DARVOCET [Concomitant]
     Dates: start: 19971011
  23. DILANTIN [Concomitant]
     Dates: start: 19951003
  24. RESTORIL [Concomitant]
     Dates: start: 20011113
  25. NIASPAN [Concomitant]
     Dosage: 500MG-1000MG
     Dates: start: 20030305
  26. TRAMADOL HCL [Concomitant]
     Dates: start: 20011113
  27. TYLENOL (CAPLET) [Concomitant]
     Dates: start: 19840728
  28. LORAZEPAM [Concomitant]
     Dates: start: 19991108
  29. DEPAKOTE [Concomitant]

REACTIONS (4)
  - BLOOD CHOLESTEROL INCREASED [None]
  - HYPERCHOLESTEROLAEMIA [None]
  - SUICIDE ATTEMPT [None]
  - TYPE 2 DIABETES MELLITUS [None]
